FAERS Safety Report 13159406 (Version 1)
Quarter: 2017Q1

REPORT INFORMATION
  Report Type: Report from Study
  Country: US (occurrence: US)
  Receive Date: 20170127
  Receipt Date: 20170127
  Transmission Date: 20170428
  Serious: Yes (Other)
  Sender: FDA-Public Use
  Company Number: US-SA-2015SA221054

PATIENT
  Age: 57 Year
  Sex: Male

DRUGS (1)
  1. LEMTRADA [Suspect]
     Active Substance: ALEMTUZUMAB
     Indication: MULTIPLE SCLEROSIS
     Route: 041
     Dates: start: 20151130, end: 20151204

REACTIONS (12)
  - Cardiac flutter [Recovered/Resolved]
  - Neck pain [Recovering/Resolving]
  - Malaise [Unknown]
  - Nasal congestion [Unknown]
  - Myalgia [Recovering/Resolving]
  - Oropharyngeal pain [Unknown]
  - Atrial fibrillation [Recovered/Resolved]
  - Rash macular [Recovering/Resolving]
  - Lung disorder [Unknown]
  - Mobility decreased [Unknown]
  - Dyspnoea [Unknown]
  - Fatigue [Recovering/Resolving]

NARRATIVE: CASE EVENT DATE: 2015
